FAERS Safety Report 17880664 (Version 1)
Quarter: 2020Q2

REPORT INFORMATION
  Report Type: Spontaneous
  Country: US (occurrence: US)
  Receive Date: 20200610
  Receipt Date: 20200610
  Transmission Date: 20200714
  Serious: No
  Sender: FDA-Public Use
  Company Number: US-ALNYLAM PHARMACEUTICALS, INC.-ALN-2020-000832

PATIENT
  Sex: Female

DRUGS (2)
  1. HEMIN [Concomitant]
     Active Substance: HEMIN
     Indication: PORPHYRIA ACUTE
  2. GIVLAARI [Suspect]
     Active Substance: GIVOSIRAN SODIUM
     Indication: PORPHYRIA ACUTE
     Route: 058

REACTIONS (9)
  - Gastrooesophageal reflux disease [Unknown]
  - Hypersensitivity [Unknown]
  - Nervous system disorder [Unknown]
  - Rash macular [Unknown]
  - Pruritus [Unknown]
  - Porphyria acute [Unknown]
  - Malaise [Unknown]
  - Injection site pain [Unknown]
  - Fatigue [Unknown]
